APPROVED DRUG PRODUCT: FLUOXETINE HYDROCHLORIDE
Active Ingredient: FLUOXETINE HYDROCHLORIDE
Strength: EQ 10MG BASE
Dosage Form/Route: CAPSULE;ORAL
Application: A077469 | Product #001
Applicant: SANDOZ INC
Approved: Nov 17, 2008 | RLD: No | RS: No | Type: DISCN